FAERS Safety Report 17757922 (Version 1)
Quarter: 2020Q2

REPORT INFORMATION
  Report Type: Report from Study
  Country: US (occurrence: US)
  Receive Date: 20200507
  Receipt Date: 20200507
  Transmission Date: 20200714
  Serious: Yes (Hospitalization, Other)
  Sender: FDA-Public Use
  Company Number: US-GILEAD-2020-0463602

PATIENT
  Age: 69 Year
  Sex: Female

DRUGS (1)
  1. AZTREONAM LYSINE [Suspect]
     Active Substance: AZTREONAM LYSINE
     Indication: CYSTIC FIBROSIS
     Dosage: 75 MG, TID 28 DAYS ON AND 28 DAYS OFF
     Route: 055
     Dates: start: 201908

REACTIONS (12)
  - Myocardial infarction [Unknown]
  - Cardiac disorder [Not Recovered/Not Resolved]
  - Heart rate abnormal [Unknown]
  - Atrioventricular node dysfunction [Unknown]
  - Vertigo [Unknown]
  - Sinusitis [Unknown]
  - Throat irritation [Not Recovered/Not Resolved]
  - Nerve compression [Unknown]
  - Dyspnoea [Unknown]
  - Sinus disorder [Not Recovered/Not Resolved]
  - Angina pectoris [Unknown]
  - Cough [Unknown]

NARRATIVE: CASE EVENT DATE: 202003
